FAERS Safety Report 14943634 (Version 23)
Quarter: 2022Q3

REPORT INFORMATION
  Report Type: Spontaneous
  Country: DE (occurrence: DE)
  Receive Date: 20180528
  Receipt Date: 20220728
  Transmission Date: 20221027
  Serious: Yes (Hospitalization)
  Sender: FDA-Public Use
  Company Number: PHHY2018DE007005

PATIENT
  Age: 62 Year
  Sex: Female
  Weight: 45 kg

DRUGS (97)
  1. ESIDRIX [Interacting]
     Active Substance: HYDROCHLOROTHIAZIDE
     Indication: Product used for unknown indication
     Dosage: 25 MG, QD (1-0-0-0)
     Route: 048
  2. POTASSIUM CHLORIDE [Interacting]
     Active Substance: POTASSIUM CHLORIDE
     Indication: Product used for unknown indication
     Dosage: 100 MG, QD (1-0-0-0)
     Route: 048
  3. HYDROCHLOROTHIAZIDE [Interacting]
     Active Substance: HYDROCHLOROTHIAZIDE
     Indication: Product used for unknown indication
     Dosage: 25 MG, QD (1-0-0-0)
     Route: 048
  4. HYDROCHLOROTHIAZIDE [Interacting]
     Active Substance: HYDROCHLOROTHIAZIDE
     Dosage: 25 MG, QD
     Route: 048
  5. FUROSEMIDE [Interacting]
     Active Substance: FUROSEMIDE
     Indication: Product used for unknown indication
     Dosage: 160 MG, QD
     Route: 048
  6. FUROSEMIDE [Interacting]
     Active Substance: FUROSEMIDE
     Dosage: 40 MG, QID
     Route: 048
  7. FUROSEMIDE [Interacting]
     Active Substance: FUROSEMIDE
     Dosage: 40 MG, Q6H
     Route: 048
  8. FUROSEMIDE [Interacting]
     Active Substance: FUROSEMIDE
     Dosage: 40 MG, QD
     Route: 048
  9. CHOLECALCIFEROL [Suspect]
     Active Substance: CHOLECALCIFEROL
     Indication: Product used for unknown indication
     Dosage: UNK, QD
     Route: 048
  10. FENTANYL [Suspect]
     Active Substance: FENTANYL
     Indication: Product used for unknown indication
     Dosage: 50 UG, QD
     Route: 048
  11. BENSERAZIDE\LEVODOPA [Interacting]
     Active Substance: BENSERAZIDE\LEVODOPA
     Indication: Product used for unknown indication
     Dosage: 100 MG, QD
     Route: 048
  12. BENSERAZIDE\LEVODOPA [Interacting]
     Active Substance: BENSERAZIDE\LEVODOPA
     Dosage: 1 DOSAGE FORM, QD
     Route: 055
  13. BENSERAZIDE\LEVODOPA [Interacting]
     Active Substance: BENSERAZIDE\LEVODOPA
     Dosage: 100 MG, BID
     Route: 048
  14. BENSERAZIDE\LEVODOPA [Interacting]
     Active Substance: BENSERAZIDE\LEVODOPA
     Dosage: 1 DOSAGE FORM, QD
     Route: 055
  15. BENSERAZIDE\LEVODOPA [Interacting]
     Active Substance: BENSERAZIDE\LEVODOPA
     Dosage: 100 MG, QD
     Route: 048
  16. BENSERAZIDE\LEVODOPA [Interacting]
     Active Substance: BENSERAZIDE\LEVODOPA
     Dosage: 200 MG, Q12H
     Route: 048
  17. BENSERAZIDE\LEVODOPA [Interacting]
     Active Substance: BENSERAZIDE\LEVODOPA
     Dosage: 100 MG, QD
     Route: 048
  18. BENSERAZIDE\LEVODOPA [Interacting]
     Active Substance: BENSERAZIDE\LEVODOPA
     Dosage: 1 DOSAGE FORM, QD
     Route: 055
  19. LACTULOSE [Interacting]
     Active Substance: LACTULOSE
     Indication: Product used for unknown indication
     Dosage: 1 DOSAGE FORM, QD,  (1 MEASURING CUP)
     Route: 048
  20. LACTULOSE [Interacting]
     Active Substance: LACTULOSE
     Dosage: 1 DOSAGE FORM, QD
     Route: 048
  21. LACTULOSE [Interacting]
     Active Substance: LACTULOSE
     Dosage: 1 DOSAGE FORM, QD
     Route: 048
  22. METAMIZOLE SODIUM [Interacting]
     Active Substance: METAMIZOLE SODIUM
     Indication: Product used for unknown indication
     Dosage: 30 GTT, TID
     Route: 048
  23. METAMIZOLE SODIUM [Interacting]
     Active Substance: METAMIZOLE SODIUM
     Dosage: UNK DRP, Q8H (90 DROPS (30 DROPS IN 8 HOUR))
     Route: 048
  24. PANTOPRAZOLE [Interacting]
     Active Substance: PANTOPRAZOLE
     Indication: Product used for unknown indication
     Dosage: 40 MG,QD (1-0-0-0)
     Route: 048
  25. PANTOPRAZOLE [Interacting]
     Active Substance: PANTOPRAZOLE
     Dosage: 40 MG, QD
     Route: 048
  26. MAGNESIUM [Interacting]
     Active Substance: MAGNESIUM
     Indication: Product used for unknown indication
     Dosage: 2 DOSAGE FORM, BID, (UG/L)
     Route: 048
  27. ACETAMINOPHEN [Interacting]
     Active Substance: ACETAMINOPHEN
     Indication: Product used for unknown indication
     Dosage: 90 DOSAGE FORM, QD (UNIT DOSE: 30 DROPS)
     Route: 048
  28. ACETAMINOPHEN [Interacting]
     Active Substance: ACETAMINOPHEN
     Dosage: 30 GTT, TID
     Route: 048
  29. ACETAMINOPHEN [Interacting]
     Active Substance: ACETAMINOPHEN
     Dosage: 1 DOSAGE FORM, QD
     Route: 048
  30. ACETAMINOPHEN [Interacting]
     Active Substance: ACETAMINOPHEN
     Dosage: 3 DOSAGE FORM, Q8H
     Route: 048
  31. SIMVASTATIN [Interacting]
     Active Substance: SIMVASTATIN
     Indication: Product used for unknown indication
     Dosage: 40 MG, QD (0-0-1-0)
     Route: 048
  32. SIMVASTATIN [Interacting]
     Active Substance: SIMVASTATIN
     Dosage: 40 MG, QD
     Route: 048
  33. SPIRONOLACTONE [Interacting]
     Active Substance: SPIRONOLACTONE
     Indication: Product used for unknown indication
     Dosage: 100 MG, QD (1-0-0-0)
     Route: 048
  34. SPIRONOLACTONE [Interacting]
     Active Substance: SPIRONOLACTONE
     Dosage: 1 DOSAGE FORM (100 MG), QD
     Route: 048
  35. SPIRONOLACTONE [Interacting]
     Active Substance: SPIRONOLACTONE
     Dosage: 2 DOSAGE FORM, QD
     Route: 048
  36. SPIRONOLACTONE [Interacting]
     Active Substance: SPIRONOLACTONE
     Dosage: 200 MG, BID 200 MG, QD 2-0-0-0)
     Route: 048
  37. SPIRONOLACTONE [Interacting]
     Active Substance: SPIRONOLACTONE
     Dosage: 200 MG, Q12H
     Route: 048
  38. SPIRONOLACTONE [Interacting]
     Active Substance: SPIRONOLACTONE
     Dosage: 100 MG, QD
     Route: 048
  39. SPIRONOLACTONE [Interacting]
     Active Substance: SPIRONOLACTONE
     Dosage: 100 MG, Q12H
     Route: 048
  40. FLUTICASONE PROPIONATE\SALMETEROL XINAFOATE [Interacting]
     Active Substance: FLUTICASONE PROPIONATE\SALMETEROL XINAFOATE
     Indication: Product used for unknown indication
     Dosage: 2 DOSAGE FORM, QD
     Route: 048
  41. FLUTICASONE PROPIONATE\SALMETEROL XINAFOATE [Interacting]
     Active Substance: FLUTICASONE PROPIONATE\SALMETEROL XINAFOATE
     Dosage: 1 DOSAGE FORM, QD
     Route: 048
  42. FLUTICASONE PROPIONATE\SALMETEROL XINAFOATE [Interacting]
     Active Substance: FLUTICASONE PROPIONATE\SALMETEROL XINAFOATE
     Dosage: 1 DOSAGE FORM, QD
     Route: 055
  43. FLUTICASONE PROPIONATE\SALMETEROL XINAFOATE [Interacting]
     Active Substance: FLUTICASONE PROPIONATE\SALMETEROL XINAFOATE
     Dosage: 2 DOSAGE FORM, QD
     Route: 055
  44. RAPAMUNE [Interacting]
     Active Substance: SIROLIMUS
     Indication: Product used for unknown indication
     Dosage: 1 MG, QD (1-0-0-0)
     Route: 065
  45. RAPAMUNE [Interacting]
     Active Substance: SIROLIMUS
     Dosage: UNK
     Route: 065
  46. AZATHIOPRINE [Interacting]
     Active Substance: AZATHIOPRINE
     Indication: Product used for unknown indication
     Dosage: 50 MG, QD
     Route: 048
  47. MAGNESIUM [Interacting]
     Active Substance: MAGNESIUM
     Indication: Product used for unknown indication
     Dosage: 2 UNK, QD, (2-0-0-0) (UG/L)
     Route: 048
  48. MAGNESIUM [Interacting]
     Active Substance: MAGNESIUM
     Dosage: 2 DOSAGE FORM, QD
     Route: 048
  49. MAGNESIUM [Interacting]
     Active Substance: MAGNESIUM
     Dosage: UNK, BID (12 HOURS)
     Route: 048
  50. MAGNESIUM [Interacting]
     Active Substance: MAGNESIUM
     Dosage: 1 DOSAGE FORM (2 UNK), QD
     Route: 055
  51. CHOLECALCIFEROL [Interacting]
     Active Substance: CHOLECALCIFEROL
     Indication: Product used for unknown indication
     Dosage: 100 IU, QD (100 IE, 1-0-0-0)
     Route: 048
  52. CHOLECALCIFEROL [Interacting]
     Active Substance: CHOLECALCIFEROL
     Dosage: 1 DOSAGE FORM, QD
     Route: 048
  53. CHOLECALCIFEROL [Interacting]
     Active Substance: CHOLECALCIFEROL
     Dosage: 100 UNK, QD
     Route: 048
  54. PANTOZOL [Interacting]
     Active Substance: PANTOPRAZOLE SODIUM
     Indication: Product used for unknown indication
     Dosage: 40 MG, QD (1-0-0-0)
     Route: 048
  55. FENTANYL [Interacting]
     Active Substance: FENTANYL
     Indication: Product used for unknown indication
     Dosage: 50 UG,QD
     Route: 048
  56. FENTANYL [Interacting]
     Active Substance: FENTANYL
     Dosage: 50 MG, QD
     Route: 048
  57. AMBROXOL HYDROCHLORIDE [Interacting]
     Active Substance: AMBROXOL HYDROCHLORIDE
     Indication: Product used for unknown indication
     Dosage: 30 GTT, PRN
     Route: 048
  58. AMBROXOL HYDROCHLORIDE [Interacting]
     Active Substance: AMBROXOL HYDROCHLORIDE
     Dosage: 30 DRP, PRN (1/12 MILLILITRE)
     Route: 048
  59. SPIRIVA [Interacting]
     Active Substance: TIOTROPIUM BROMIDE MONOHYDRATE
     Indication: Product used for unknown indication
     Dosage: 18 UG, BID (36 UG, 1-0-1-0)
     Route: 055
  60. SPIRIVA [Interacting]
     Active Substance: TIOTROPIUM BROMIDE MONOHYDRATE
     Dosage: 2 DOSAGE FORM, QD
     Route: 055
  61. SPIRIVA [Interacting]
     Active Substance: TIOTROPIUM BROMIDE MONOHYDRATE
     Dosage: 1 DOSAGE FORM, QD
     Route: 055
  62. SPIRIVA [Interacting]
     Active Substance: TIOTROPIUM BROMIDE MONOHYDRATE
     Dosage: 36 UG, QD
     Route: 055
  63. SPIRIVA [Interacting]
     Active Substance: TIOTROPIUM BROMIDE MONOHYDRATE
     Dosage: 36 UG, BID
     Route: 055
  64. URSODIOL [Interacting]
     Active Substance: URSODIOL
     Indication: Product used for unknown indication
     Dosage: 500 MG, BID (1-0-1-0)
     Route: 048
  65. URSODIOL [Interacting]
     Active Substance: URSODIOL
     Dosage: 500 MG, Q12H
     Route: 048
  66. CITRIC ACID MONOHYDRATE\POTASSIUM BICARBONATE\POTASSIUM CITRATE [Interacting]
     Active Substance: CITRIC ACID MONOHYDRATE\POTASSIUM BICARBONATE\POTASSIUM CITRATE
     Indication: Product used for unknown indication
     Dosage: 100 MG, QD
     Route: 048
  67. EZETIMIBE [Interacting]
     Active Substance: EZETIMIBE
     Indication: Product used for unknown indication
     Dosage: 10 MG, QD (1-0-0-0)
     Route: 048
  68. BENSERAZIDE HYDROCHLORIDE [Interacting]
     Active Substance: BENSERAZIDE HYDROCHLORIDE
     Indication: Product used for unknown indication
     Dosage: 100 MG, UNK (1-0-2.5-0) (100 MG)
     Route: 048
  69. BENSERAZIDE HYDROCHLORIDE [Interacting]
     Active Substance: BENSERAZIDE HYDROCHLORIDE
     Dosage: 100 MG, BID
     Route: 048
  70. BENSERAZIDE HYDROCHLORIDE [Interacting]
     Active Substance: BENSERAZIDE HYDROCHLORIDE
     Dosage: 100 MG, UNK (1-0-2.5-0) (100 MG
     Route: 048
  71. BENSERAZIDE HYDROCHLORIDE [Interacting]
     Active Substance: BENSERAZIDE HYDROCHLORIDE
     Dosage: 100 MG
     Route: 048
  72. BENSERAZIDE HYDROCHLORIDE [Interacting]
     Active Substance: BENSERAZIDE HYDROCHLORIDE
     Dosage: 100 MG, Q12H
     Route: 048
  73. BENSERAZIDE HYDROCHLORIDE [Interacting]
     Active Substance: BENSERAZIDE HYDROCHLORIDE
     Dosage: 200 MG (100 MG,1 IN 12 HOUR)
     Route: 065
  74. PENTAZOCINE HYDROCHLORIDE [Interacting]
     Active Substance: PENTAZOCINE HYDROCHLORIDE
     Indication: Product used for unknown indication
     Dosage: 90 DOSAGE FORM, QD
     Route: 048
  75. PENTAZOCINE HYDROCHLORIDE [Interacting]
     Active Substance: PENTAZOCINE HYDROCHLORIDE
     Dosage: 30 GTT, TID
     Route: 048
  76. PENTAZOCINE HYDROCHLORIDE [Interacting]
     Active Substance: PENTAZOCINE HYDROCHLORIDE
     Dosage: 1 DOSAGE FORM, QD, (UG/L)
     Route: 048
  77. PENTAZOCINE HYDROCHLORIDE [Interacting]
     Active Substance: PENTAZOCINE HYDROCHLORIDE
     Dosage: 90 DOSAGE FORM, QD
     Route: 048
  78. PENTAZOCINE HYDROCHLORIDE [Interacting]
     Active Substance: PENTAZOCINE HYDROCHLORIDE
     Dosage: 30 DRP, Q8H
     Route: 048
  79. PENTAZOCINE HYDROCHLORIDE [Interacting]
     Active Substance: PENTAZOCINE HYDROCHLORIDE
     Dosage: 1 DOSAGE FORM, QD
     Route: 048
  80. PENTAZOCINE HYDROCHLORIDE [Interacting]
     Active Substance: PENTAZOCINE HYDROCHLORIDE
     Dosage: 1 DOSAGE FORM, Q8H
     Route: 065
  81. PANTOPRAZOLE SODIUM [Interacting]
     Active Substance: PANTOPRAZOLE SODIUM
     Indication: Product used for unknown indication
     Dosage: 40 MG,QD, (1-0-0-0)
     Route: 048
  82. TIOTROPIUM BROMIDE [Interacting]
     Active Substance: TIOTROPIUM BROMIDE
     Indication: Product used for unknown indication
     Dosage: 2 DOSAGE FORM, QD
     Route: 055
  83. TIOTROPIUM BROMIDE [Interacting]
     Active Substance: TIOTROPIUM BROMIDE
     Dosage: 36 UG, QD 18 UG, BID (1-0-1-0)
     Route: 055
  84. TIOTROPIUM BROMIDE [Interacting]
     Active Substance: TIOTROPIUM BROMIDE
     Dosage: 18 UG (12 HOURS), BID
     Route: 055
  85. TIOTROPIUM BROMIDE [Interacting]
     Active Substance: TIOTROPIUM BROMIDE
     Dosage: 18 UG, Q12H
     Route: 055
  86. TIOTROPIUM BROMIDE [Interacting]
     Active Substance: TIOTROPIUM BROMIDE
     Dosage: 36 UG, QD, 18 UG, BID (1-0-1-0)
     Route: 055
  87. EZETIMIBE [Suspect]
     Active Substance: EZETIMIBE
     Indication: Product used for unknown indication
     Dosage: 10 MG, QD
     Route: 048
  88. METAMIZOLE [Suspect]
     Active Substance: METAMIZOLE
     Indication: Product used for unknown indication
     Dosage: 30 GTT DROPS, Q8H
     Route: 048
  89. METAMIZOLE [Suspect]
     Active Substance: METAMIZOLE
     Dosage: 30 DRP, Q8H (1/12 MILLILITRE)
     Route: 048
  90. AZATHIOPRINE [Suspect]
     Active Substance: AZATHIOPRINE
     Indication: Product used for unknown indication
     Dosage: 50 MG, QD
     Route: 048
  91. LACTULOSE [Suspect]
     Active Substance: LACTULOSE
     Indication: Product used for unknown indication
     Dosage: 1 DOSAGE FORM, QD
     Route: 048
  92. LACTULOSE [Suspect]
     Active Substance: LACTULOSE
     Dosage: 1 UNK
     Route: 048
  93. SIROLIMUS [Suspect]
     Active Substance: SIROLIMUS
     Indication: Product used for unknown indication
     Dosage: 1 MG, QD
     Route: 048
  94. AMBROXOL [Suspect]
     Active Substance: AMBROXOL
     Indication: Product used for unknown indication
     Dosage: 30 DRP, PRN
     Route: 048
  95. FLUTICASONE PROPIONATE [Suspect]
     Active Substance: FLUTICASONE PROPIONATE
     Indication: Product used for unknown indication
     Dosage: 2 DOSAGE FORM, QD (2 DF, QD, 50/500 ?G)
     Route: 055
  96. FLUTICASONE PROPIONATE [Suspect]
     Active Substance: FLUTICASONE PROPIONATE
     Dosage: 1 DOSAGE FORM, QD
     Route: 055
  97. FLUTICASONE PROPIONATE [Suspect]
     Active Substance: FLUTICASONE PROPIONATE
     Dosage: 1 DOSAGE FORM, QD
     Route: 055

REACTIONS (3)
  - General physical health deterioration [Unknown]
  - Product prescribing error [Unknown]
  - Drug interaction [Unknown]

NARRATIVE: CASE EVENT DATE: 20150916
